FAERS Safety Report 6257330-0 (Version None)
Quarter: 2009Q3

REPORT INFORMATION
  Report Type: 
  Country: None (occurrence: None)
  Receive Date: 20090706
  Receipt Date: 20090620
  Transmission Date: 20100115
  Serious: Yes (Other)
  Sender: FDA-Public Use
  Company Number: PHHY2009CA20892

PATIENT
  Sex: Male

DRUGS (3)
  1. DIOVAN T30230++HY [Suspect]
     Dosage: 80 MG DAILY
     Route: 048
     Dates: start: 20081028, end: 20090216
  2. DIOVAN T30230++HY [Suspect]
     Dosage: 80 MG, QD
     Route: 048
     Dates: start: 20090411
  3. CALCIUM CHANNEL BLOCKERS [Concomitant]

REACTIONS (2)
  - BLOOD PRESSURE INCREASED [None]
  - SINUS TACHYCARDIA [None]
